FAERS Safety Report 4609610-X (Version None)
Quarter: 2005Q1

REPORT INFORMATION
  Report Type: 
  Country: None (occurrence: None)
  Receive Date: 20050316
  Receipt Date: 20050131
  Transmission Date: 20050727
  Serious: No
  Sender: FDA-Public Use
  Company Number: 200510456JP

PATIENT
  Age: 64 Year
  Sex: Male
  Weight: 57.5 kg

DRUGS (8)
  1. TAXOTERE [Suspect]
     Indication: GASTRIC CANCER
     Route: 041
     Dates: start: 20050126, end: 20050126
  2. FURTULON [Concomitant]
     Indication: CHEMOTHERAPY
     Route: 048
     Dates: start: 20050119, end: 20050201
  3. TAKEPRON [Concomitant]
     Indication: GASTROINTESTINAL MUCOSAL DISORDER
     Route: 048
     Dates: start: 20041221
  4. TAKEPRON [Concomitant]
     Indication: PROPHYLAXIS
     Route: 048
     Dates: start: 20041221
  5. GASMOTIN [Concomitant]
     Indication: GASTROINTESTINAL MUCOSAL DISORDER
     Route: 048
     Dates: start: 20041221
  6. GASMOTIN [Concomitant]
     Indication: PROPHYLAXIS
     Route: 048
     Dates: start: 20041221
  7. HERBESSER [Concomitant]
     Indication: MYOCARDIAL ISCHAEMIA
     Route: 048
     Dates: start: 20021225
  8. ASPIRIN [Concomitant]
     Indication: ATRIAL FIBRILLATION
     Route: 048
     Dates: start: 20021225

REACTIONS (2)
  - HICCUPS [None]
  - INSOMNIA [None]
